FAERS Safety Report 5934137-2 (Version None)
Quarter: 2008Q4

REPORT INFORMATION
  Report Type: 
  Country: None (occurrence: None)
  Receive Date: 20081029
  Receipt Date: 20081027
  Transmission Date: 20090506
  Serious: Yes (Death)
  Sender: FDA-Public Use
  Company Number: A0753864A

PATIENT
  Age: 89 Year
  Sex: Male
  Weight: 59 kg

DRUGS (8)
  1. SERETIDE [Suspect]
     Indication: LUNG DISORDER
     Route: 055
     Dates: start: 20080919, end: 20081021
  2. ASPIRIN [Concomitant]
  3. ENALAPRIL MALEATE [Concomitant]
  4. BENZALKONIUM CHLORIDE [Concomitant]
  5. IPRATROPIUM BROMIDE [Concomitant]
  6. FUROSEMIDE [Concomitant]
  7. METOPROLOL SUCCINATE [Concomitant]
  8. OMEPRAZOLE [Concomitant]

REACTIONS (1)
  - CARDIAC DISORDER [None]
